FAERS Safety Report 4299020-X (Version None)
Quarter: 2004Q1

REPORT INFORMATION
  Report Type: 
  Country: None (occurrence: None)
  Receive Date: 20040217
  Receipt Date: 20040128
  Transmission Date: 20041129
  Serious: Yes (Hospitalization)
  Sender: FDA-Public Use
  Company Number: 7383

PATIENT
  Age: 17 Year
  Sex: Male

DRUGS (3)
  1. METHOTREXATE [Suspect]
     Indication: JUVENILE ARTHRITIS
     Dosage: 256 MG WEEKLY, SC
     Route: 058
  2. ETANERCEPT [Suspect]
     Indication: JUVENILE ARTHRITIS
     Dosage: 25 MG 2/WK, SC
     Route: 058
  3. NAPROXEN [Concomitant]

REACTIONS (4)
  - ABDOMINAL ADHESIONS [None]
  - CYST [None]
  - ENTEROCOCCAL INFECTION [None]
  - URINARY TRACT INFECTION [None]
